FAERS Safety Report 24594433 (Version 1)
Quarter: 2024Q4

REPORT INFORMATION
  Report Type: Spontaneous
  Country: US (occurrence: None)
  Receive Date: 20241108
  Receipt Date: 20241108
  Transmission Date: 20250115
  Serious: Yes (Hospitalization)
  Sender: Public
  Company Number: None

PATIENT
  Age: 18 Year
  Sex: Male

DRUGS (4)
  1. ADVATE [Suspect]
     Active Substance: ANTIHEMOPHILIC FACTOR, HUMAN RECOMBINANT
     Indication: Factor VIII deficiency
     Dosage: 4900 UNITS AS NEEDED IV
     Route: 042
     Dates: start: 202410
  2. BLUNT FILTER [Concomitant]
  3. EPIDIOLEX ORAL SOLN [Concomitant]
  4. HEMLIBRA SDV [Concomitant]

REACTIONS (4)
  - Haemorrhage [None]
  - Joint injury [None]
  - Fall [None]
  - Ligament sprain [None]

NARRATIVE: CASE EVENT DATE: 20241031
